FAERS Safety Report 7632667-9 (Version None)
Quarter: 2011Q3

REPORT INFORMATION
  Report Type: 
  Country: None (occurrence: None)
  Receive Date: 20110725
  Receipt Date: 20101118
  Transmission Date: 20111222
  Serious: Yes (Other)
  Sender: FDA-Public Use
  Company Number: US-BRISTOL-MYERS SQUIBB COMPANY-15394372

PATIENT
  Age: 71 Year
  Sex: Female

DRUGS (12)
  1. CRESTOR [Concomitant]
  2. SOTALOL HCL [Concomitant]
  3. COUMADIN [Suspect]
     Dosage: TAKING FROM LAST YEAR
  4. SIMVASTATIN [Concomitant]
  5. OMEGA 3 FATTY ACID [Concomitant]
  6. METFORMIN HCL [Concomitant]
  7. WELLBUTRIN [Concomitant]
  8. PRILOSEC [Concomitant]
  9. LEVOTHYROXINE SODIUM [Concomitant]
  10. LISINOPRIL [Concomitant]
  11. POTASSIUM CHLORIDE [Concomitant]
  12. TYLENOL-500 [Concomitant]

REACTIONS (6)
  - INTERNATIONAL NORMALISED RATIO DECREASED [None]
  - FATIGUE [None]
  - MOVEMENT DISORDER [None]
  - EPISTAXIS [None]
  - APHONIA [None]
  - VOMITING [None]
